FAERS Safety Report 7936811-5 (Version None)
Quarter: 2011Q4

REPORT INFORMATION
  Report Type: 
  Country: None (occurrence: None)
  Receive Date: 20111110
  Receipt Date: 20111107
  Transmission Date: 20120403
  Serious: Yes (Life-Threatening, Other)
  Sender: FDA-Public Use
  Company Number: 2011029653

PATIENT
  Sex: Female
  Weight: 81.6475 kg

DRUGS (18)
  1. HIZENTRA [Suspect]
  2. SIMVASTATIN [Concomitant]
  3. NORVASC [Concomitant]
  4. ASPIRIN [Concomitant]
  5. DOXEPIN HCL [Concomitant]
  6. TRICOR [Concomitant]
  7. HIZENTRA [Suspect]
     Indication: IMMUNODEFICIENCY COMMON VARIABLE
     Dosage: 6 G 1X/WEEK, INFUSED 30 ML VIA 2 SITES OVER 1-2 HOUR, SUBCUTANEOUS
     Route: 058
     Dates: start: 20101115
  8. HIZENTRA [Suspect]
     Indication: IMMUNODEFICIENCY COMMON VARIABLE
     Dosage: 6 G 1X/WEEK, INFUSED 30 ML VIA 2 SITES OVER 1-2 HOUR, SUBCUTANEOUS
     Route: 058
     Dates: start: 20110827, end: 20110827
  9. CYMBALTA [Concomitant]
  10. VITAMIN D [Concomitant]
  11. VALIUM [Concomitant]
  12. POTASSIUM CL (POTASSIOUM CHLORIDE) [Concomitant]
  13. PLAVIX [Concomitant]
  14. ACETAMINOPHEN [Concomitant]
  15. VITAMIN B12 [Concomitant]
  16. BYSTOLIC [Concomitant]
  17. VISTARIL (HYDROXYZINE HYDROCHLORIDE) [Concomitant]
  18. CLONIDINE [Concomitant]

REACTIONS (8)
  - BLOOD UREA INCREASED [None]
  - TYPE III IMMUNE COMPLEX MEDIATED REACTION [None]
  - DYSARTHRIA [None]
  - BLOOD CREATININE INCREASED [None]
  - OBSTRUCTIVE AIRWAYS DISORDER [None]
  - INCREASED UPPER AIRWAY SECRETION [None]
  - THROAT TIGHTNESS [None]
  - RETCHING [None]
